FAERS Safety Report 6869446-6 (Version None)
Quarter: 2010Q3

REPORT INFORMATION
  Report Type: 
  Country: None (occurrence: None)
  Receive Date: 20100722
  Receipt Date: 20100712
  Transmission Date: 20110219
  Serious: Yes (Hospitalization)
  Sender: FDA-Public Use
  Company Number: DE-GENENTECH-304290

PATIENT
  Age: 18 Year
  Sex: Female
  Weight: 71 kg

DRUGS (4)
  1. RITUXIMAB [Suspect]
     Indication: GOODPASTURE'S SYNDROME
     Dosage: 1000 MG, SINGLE
     Route: 042
  2. PREDNISOLONE [Concomitant]
     Indication: PRODUCT USED FOR UNKNOWN INDICATION
     Dosage: UNK
  3. PREDNISOLONE [Concomitant]
     Dosage: UNK
  4. CYCLOPHOSPHAMIDE [Concomitant]
     Indication: PRODUCT USED FOR UNKNOWN INDICATION
     Dosage: UNK
     Route: 048

REACTIONS (1)
  - LEUKOENCEPHALOPATHY [None]
